FAERS Safety Report 8286531-5 (Version None)
Quarter: 2012Q2

REPORT INFORMATION
  Report Type: 
  Country: None (occurrence: None)
  Receive Date: 20120411
  Receipt Date: 20120328
  Transmission Date: 20120825
  Serious: Yes (Other)
  Sender: FDA-Public Use
  Company Number: NGX_00809_2011

PATIENT
  Age: 55 Year
  Sex: Male

DRUGS (5)
  1. QUTENZA [Suspect]
     Indication: NEURALGIA
     Dosage: (1 DF,  [PATCH] TOPICAL)
     Route: 061
     Dates: start: 20111215, end: 20111215
  2. CYMBALTA [Concomitant]
  3. LYRICA [Concomitant]
  4. NORSPAN /00444001/ [Concomitant]
  5. NEUROCIL /00038602/ [Concomitant]

REACTIONS (2)
  - ALLODYNIA [None]
  - APPLICATION SITE PAIN [None]
